FAERS Safety Report 23778171 (Version 4)
Quarter: 2024Q3

REPORT INFORMATION
  Report Type: Spontaneous
  Country: US (occurrence: US)
  Receive Date: 20240424
  Receipt Date: 20240805
  Transmission Date: 20241017
  Serious: Yes (Hospitalization)
  Sender: CALLIDITAS THERAPEUTICS
  Company Number: US-Calliditas-2024CAL00580

PATIENT
  Age: 71 Year
  Sex: Male
  Weight: 88.6 kg

DRUGS (1)
  1. TARPEYO [Suspect]
     Active Substance: BUDESONIDE
     Indication: IgA nephropathy
     Dosage: 16MG (4MG CAPSULES) ONCE DAILY
     Route: 048
     Dates: start: 20231031

REACTIONS (9)
  - Pneumonia [Unknown]
  - Haematological infection [Unknown]
  - Product dose omission issue [Recovered/Resolved]
  - Blood glucose increased [Unknown]
  - Fatigue [Recovering/Resolving]
  - Rhinovirus infection [Unknown]
  - Peripheral swelling [Unknown]
  - Fluid retention [Unknown]
  - Product residue present [Unknown]

NARRATIVE: CASE EVENT DATE: 20240301
